FAERS Safety Report 7042220-6 (Version None)
Quarter: 2010Q3

REPORT INFORMATION
  Report Type: 
  Country: None (occurrence: None)
  Receive Date: 20100929
  Receipt Date: 20100810
  Transmission Date: 20110219
  Serious: No
  Sender: FDA-Public Use
  Company Number: US-WYE-H16822710

PATIENT
  Age: 53 Year
  Sex: Female
  Weight: 59.02 kg

DRUGS (6)
  1. PRISTIQ [Suspect]
     Indication: DEPRESSION
     Dosage: (50 MG 1X PER 1 DAY) (DECREASED HER DOSE BY SPLITTING 50 MG TABLET AND TAKING HALF OF A TABLET EVERY
     Dates: start: 20091101, end: 20090101
  2. PRISTIQ [Suspect]
     Indication: DEPRESSION
     Dosage: (50 MG 1X PER 1 DAY) (DECREASED HER DOSE BY SPLITTING 50 MG TABLET AND TAKING HALF OF A TABLET EVERY
     Dates: start: 20090101, end: 20100112
  3. PRISTIQ [Suspect]
     Indication: DEPRESSION
     Dosage: (50 MG 1X PER 1 DAY) (DECREASED HER DOSE BY SPLITTING 50 MG TABLET AND TAKING HALF OF A TABLET EVERY
     Dates: start: 20100113
  4. MELOXICAM [Concomitant]
  5. CITRACAL PL (CALCIUM CITRATE/ VITAMIN D) [Concomitant]
  6. ASPIRIN [Concomitant]

REACTIONS (12)
  - ARTHRITIS [None]
  - DEPRESSION [None]
  - DRUG EFFECT INCREASED [None]
  - DRUG WITHDRAWAL SYNDROME [None]
  - FEELING ABNORMAL [None]
  - INSOMNIA [None]
  - INTENTIONAL DRUG MISUSE [None]
  - LIBIDO DECREASED [None]
  - PARAESTHESIA [None]
  - SOMNOLENCE [None]
  - THERAPEUTIC RESPONSE UNEXPECTED [None]
  - WRONG TECHNIQUE IN DRUG USAGE PROCESS [None]
